FAERS Safety Report 5716851-7 (Version None)
Quarter: 2008Q2

REPORT INFORMATION
  Report Type: 
  Country: None (occurrence: None)
  Receive Date: 20080422
  Receipt Date: 20080409
  Transmission Date: 20081010
  Serious: Yes (Hospitalization)
  Sender: FDA-Public Use
  Company Number: GXKR2008JP03560

PATIENT
  Age: 3 Year
  Sex: Male

DRUGS (3)
  1. ISOTRETINOIN [Suspect]
     Indication: NEUROBLASTOMA
     Dosage: 130 MG/M2/DAY, 2 WKS ON/OFF FOR 6 CY -24 WKS,
  2. FLUCONAZOLE [Suspect]
     Indication: PNEUMONIA FUNGAL
     Dosage: 90 MG/DAY, INTRAVENOUS; 100 MG/DAY, ORAL
     Route: 042
  3. FLUCONAZOLE [Suspect]
     Indication: PNEUMONIA FUNGAL
     Dosage: 90 MG/DAY, INTRAVENOUS; 100 MG/DAY, ORAL
     Route: 042

REACTIONS (4)
  - BLOOD PARATHYROID HORMONE DECREASED [None]
  - HYPERCALCAEMIA [None]
  - PNEUMONIA FUNGAL [None]
  - RENAL FAILURE [None]
